FAERS Safety Report 7468243-0 (Version None)
Quarter: 2011Q2

REPORT INFORMATION
  Report Type: 
  Country: None (occurrence: None)
  Receive Date: 20110509
  Receipt Date: 20110503
  Transmission Date: 20111010
  Serious: Yes (Death, Hospitalization)
  Sender: FDA-Public Use
  Company Number: US-PFIZER INC-2011032276

PATIENT
  Sex: Male

DRUGS (1)
  1. SUTENT [Suspect]
     Indication: METASTATIC RENAL CELL CARCINOMA
     Dosage: 12.5 MG, 4X/DAY, 28 DAYS EVERY 42 DAYS
     Route: 048
     Dates: start: 20110119, end: 20110208

REACTIONS (3)
  - DEATH [None]
  - UPPER LIMB FRACTURE [None]
  - PNEUMONIA [None]
